FAERS Safety Report 6825831-X (Version None)
Quarter: 2010Q3

REPORT INFORMATION
  Report Type: 
  Country: None (occurrence: None)
  Receive Date: 20100708
  Receipt Date: 20100708
  Transmission Date: 20110219
  Serious: No
  Sender: FDA-Public Use
  Company Number: None

PATIENT
  Sex: Male
  Weight: 65.318 kg

DRUGS (1)
  1. DEPAKOTE [Suspect]
     Dosage: 250MG TID P.O.
     Route: 048

REACTIONS (1)
  - DRUG INEFFECTIVE [None]
